FAERS Safety Report 8522348-1 (Version None)
Quarter: 2012Q3

REPORT INFORMATION
  Report Type: 
  Country: None (occurrence: None)
  Receive Date: 20120719
  Receipt Date: 20120717
  Transmission Date: 20120928
  Serious: Yes (Hospitalization)
  Sender: FDA-Public Use
  Company Number: US-GILEAD-2012-0057711

PATIENT
  Sex: Female

DRUGS (7)
  1. LETAIRIS [Suspect]
     Indication: DIET NONCOMPLIANCE
  2. LETAIRIS [Suspect]
     Indication: OXYGEN SATURATION DECREASED
  3. LETAIRIS [Suspect]
     Indication: DYSPNOEA
  4. LETAIRIS [Suspect]
     Indication: PULMONARY HYPERTENSION
     Dosage: 10 MG, UNK
     Route: 048
     Dates: start: 20100714
  5. LETAIRIS [Suspect]
     Indication: DIABETES MELLITUS
  6. REVATIO [Concomitant]
  7. LETAIRIS [Suspect]
     Indication: RIGHT VENTRICULAR SYSTOLIC PRESSURE INCREASED

REACTIONS (2)
  - LUNG INFECTION [None]
  - RESPIRATORY FAILURE [None]
